FAERS Safety Report 14169688 (Version 1)
Quarter: 2017Q4

REPORT INFORMATION
  Report Type: Spontaneous
  Country: US (occurrence: US)
  Receive Date: 20171108
  Receipt Date: 20171108
  Transmission Date: 20180321
  Serious: Yes (Other)
  Sender: FDA-Public Use
  Company Number: US-TEVA-822467USA

PATIENT
  Sex: Male

DRUGS (3)
  1. METHYLPHENIDATE. [Suspect]
     Active Substance: METHYLPHENIDATE
     Route: 065
     Dates: start: 2017
  2. METHYLPHENIDATE. [Suspect]
     Active Substance: METHYLPHENIDATE
     Route: 065
     Dates: start: 2013
  3. ALBUTEROL. [Concomitant]
     Active Substance: ALBUTEROL
     Dosage: AS NEEDED, USED FOR TWO WEEKS OF THE YEAR; ABOUT 28 PUFFS A WEEK

REACTIONS (2)
  - Arthralgia [Unknown]
  - Osteochondrosis [Unknown]
